FAERS Safety Report 12642730 (Version 2)
Quarter: 2016Q3

REPORT INFORMATION
  Report Type: Spontaneous
  Country: US (occurrence: US)
  Receive Date: 20160810
  Receipt Date: 20160828
  Transmission Date: 20161109
  Serious: No
  Sender: FDA-Public Use
  Company Number: US-ASTRAZENECA-2016SE85738

PATIENT
  Sex: Female
  Weight: 45.8 kg

DRUGS (3)
  1. ZOLADEX [Suspect]
     Active Substance: GOSERELIN ACETATE
     Indication: BREAST CANCER FEMALE
     Route: 058
     Dates: start: 20160801
  2. OTHER MEDICATIONS [Concomitant]
     Active Substance: UNSPECIFIED INGREDIENT
  3. ARIMIDEX [Concomitant]
     Active Substance: ANASTROZOLE
     Indication: BREAST CANCER FEMALE
     Dates: start: 201503

REACTIONS (2)
  - Injection site irritation [Unknown]
  - Product quality issue [Unknown]
